FAERS Safety Report 7002091-0 (Version None)
Quarter: 2010Q3

REPORT INFORMATION
  Report Type: 
  Country: None (occurrence: None)
  Receive Date: 20100920
  Receipt Date: 20100113
  Transmission Date: 20110219
  Serious: Yes (Other)
  Sender: FDA-Public Use
  Company Number: US-ASTRAZENECA-2007UW09660

PATIENT
  Age: 627 Month
  Sex: Male
  Weight: 89.8 kg

DRUGS (14)
  1. SEROQUEL [Suspect]
     Indication: BIPOLAR DISORDER
     Dosage: 25-100 MG
     Route: 048
     Dates: start: 20031031
  2. SEROQUEL [Suspect]
     Indication: DEPRESSION
     Dosage: 25-100 MG
     Route: 048
     Dates: start: 20031031
  3. SEROQUEL [Suspect]
     Indication: SCHIZOPHRENIA
     Dosage: 25-100 MG
     Route: 048
     Dates: start: 20031031
  4. SEROQUEL [Suspect]
     Indication: SLEEP DISORDER
     Dosage: 25-100 MG
     Route: 048
     Dates: start: 20031031
  5. SEROQUEL [Suspect]
     Route: 048
     Dates: start: 20040101, end: 20041201
  6. SEROQUEL [Suspect]
     Route: 048
     Dates: start: 20040101, end: 20041201
  7. SEROQUEL [Suspect]
     Route: 048
     Dates: start: 20040101, end: 20041201
  8. SEROQUEL [Suspect]
     Route: 048
     Dates: start: 20040101, end: 20041201
  9. PROZAC [Concomitant]
     Route: 048
     Dates: start: 20040223
  10. NEURONTIN [Concomitant]
     Route: 048
     Dates: start: 20040223
  11. DIAZEPAM [Concomitant]
     Route: 048
     Dates: start: 20040223
  12. ABILIFY [Concomitant]
     Route: 048
     Dates: start: 20050211
  13. CYMBALTA [Concomitant]
     Route: 048
     Dates: start: 20050401
  14. PROTONIX [Concomitant]

REACTIONS (1)
  - PANCREATITIS ACUTE [None]
